FAERS Safety Report 4546096-8 (Version None)
Quarter: 2005Q1

REPORT INFORMATION
  Report Type: 
  Country: None (occurrence: None)
  Receive Date: 20050103
  Receipt Date: 20041213
  Transmission Date: 20050727
  Serious: Yes (Death, Hospitalization)
  Sender: FDA-Public Use
  Company Number: GBS041216165

PATIENT
  Age: 58 Year
  Sex: Male
  Weight: 105 kg

DRUGS (4)
  1. GEMCITABINE HYDROCHLORIDE-IV (GEMCITABINE) [Suspect]
     Indication: ADENOCARCINOMA PANCREAS
  2. METFORMIN HCL [Concomitant]
  3. STATIN [Concomitant]
  4. ANGIOTENSIN-COVERTING ENZYME INHIBITOR [Concomitant]

REACTIONS (18)
  - ACUTE RESPIRATORY DISTRESS SYNDROME [None]
  - BLOOD ALBUMIN DECREASED [None]
  - CAPILLARY LEAK SYNDROME [None]
  - CARDIAC FAILURE CONGESTIVE [None]
  - CREPITATIONS [None]
  - DISEASE PROGRESSION [None]
  - DYSPNOEA [None]
  - GALLOP RHYTHM PRESENT [None]
  - GENERALISED OEDEMA [None]
  - HYPOXIA [None]
  - NEUTROPHIL COUNT INCREASED [None]
  - PITTING OEDEMA [None]
  - PULMONARY OEDEMA [None]
  - RESPIRATORY FAILURE [None]
  - RESPIRATORY RATE INCREASED [None]
  - VENOUS PRESSURE JUGULAR INCREASED [None]
  - WEIGHT INCREASED [None]
  - WHITE BLOOD CELL COUNT INCREASED [None]
